FAERS Safety Report 4651363-3 (Version None)
Quarter: 2005Q2

REPORT INFORMATION
  Report Type: 
  Country: None (occurrence: None)
  Receive Date: 20050404
  Receipt Date: 20041112
  Transmission Date: 20051028
  Serious: No
  Sender: FDA-Public Use
  Company Number: USA041184039

PATIENT
  Age: 75 Year
  Sex: Male

DRUGS (3)
  1. CYMBALTA [Suspect]
     Dosage: 60 MG/2 DAY
     Dates: start: 20031101
  2. PLAVIX [Concomitant]
  3. BENICAR [Concomitant]

REACTIONS (1)
  - PRESCRIBED OVERDOSE [None]
